FAERS Safety Report 13657110 (Version 2)
Quarter: 2019Q4

REPORT INFORMATION
  Report Type: Spontaneous
  Country: US (occurrence: US)
  Receive Date: 20170615
  Receipt Date: 20191024
  Transmission Date: 20200122
  Serious: Yes (Other)
  Sender: FDA-Public Use
  Company Number: US-BAYER-2017-115118

PATIENT
  Age: 43 Year
  Sex: Male
  Weight: 102.04 kg

DRUGS (3)
  1. GADAVIST [Suspect]
     Active Substance: GADOBUTROL
     Indication: MAGNETIC RESONANCE IMAGING
  2. GADAVIST [Suspect]
     Active Substance: GADOBUTROL
     Indication: MAGNETIC RESONANCE IMAGING BRAIN
     Dosage: UNK, ONCE
     Dates: start: 20170612, end: 20170612
  3. GADAVIST [Suspect]
     Active Substance: GADOBUTROL
     Indication: INTERVERTEBRAL DISC DISORDER
     Dosage: 10 ML
     Route: 042
     Dates: start: 20191001

REACTIONS (5)
  - Urticaria [Unknown]
  - Eye pruritus [None]
  - Rash [None]
  - Tongue eruption [None]
  - Angioedema [Unknown]

NARRATIVE: CASE EVENT DATE: 201706
